FAERS Safety Report 5596189-1 (Version None)
Quarter: 2007Q4

REPORT INFORMATION
  Report Type: 
  Country: None (occurrence: None)
  Receive Date: 20071218
  Receipt Date: 20061020
  Transmission Date: 20080405
  Serious: Yes (Hospitalization, Other)
  Sender: FDA-Public Use
  Company Number: 2006132332

PATIENT
  Age: 58 Year
  Sex: Male
  Weight: 110.2 kg

DRUGS (3)
  1. BEXTRA [Suspect]
     Indication: BACK PAIN
     Dosage: 20 MG (20 MG,1 IN 1 D)
     Dates: start: 20031208
  2. BEXTRA [Suspect]
     Indication: NECK PAIN
     Dosage: 20 MG (20 MG,1 IN 1 D)
     Dates: start: 20031208
  3. BEXTRA [Suspect]
     Indication: OSTEOARTHRITIS
     Dosage: 20 MG (20 MG,1 IN 1 D)
     Dates: start: 20031208

REACTIONS (1)
  - ACUTE MYOCARDIAL INFARCTION [None]
